FAERS Safety Report 8872382 (Version 1)
Quarter: 2012Q4

REPORT INFORMATION
  Report Type: 
  Country: US (occurrence: US)
  Receive Date: 20121026
  Receipt Date: 20121026
  Transmission Date: 20130627
  Serious: No
  Sender: FDA-Public Use
  Company Number: US-AMGEN-USASP2012049099

PATIENT
  Age: 53 Year
  Sex: Female

DRUGS (2)
  1. ENBREL [Suspect]
     Indication: RHEUMATOID ARTHRITIS
     Dosage: UNK
     Dates: start: 20120625, end: 20120727
  2. ENBREL [Suspect]
     Indication: PSORIASIS

REACTIONS (2)
  - Fluid retention [Recovered/Resolved]
  - Arthralgia [Not Recovered/Not Resolved]
